FAERS Safety Report 4933614-0 (Version None)
Quarter: 2006Q1

REPORT INFORMATION
  Report Type: 
  Country: None (occurrence: None)
  Receive Date: 20060306
  Receipt Date: 20050909
  Transmission Date: 20060701
  Serious: Yes (Other)
  Sender: FDA-Public Use
  Company Number: US-AMGEN-US150091

PATIENT
  Sex: Female

DRUGS (6)
  1. ENBREL [Suspect]
     Indication: RHEUMATOID ARTHRITIS
     Route: 058
     Dates: start: 20000720, end: 20030730
  2. ARAVA [Concomitant]
     Dates: start: 19990110
  3. KINERET [Concomitant]
     Indication: RHEUMATOID ARTHRITIS
     Route: 058
     Dates: start: 20030812, end: 20040920
  4. PREDNISONE [Concomitant]
     Dates: start: 19850101
  5. VIOXX [Concomitant]
     Dates: start: 20000316, end: 20040812
  6. PLAQUENIL [Concomitant]
     Dates: start: 20050101

REACTIONS (3)
  - CUTANEOUS LUPUS ERYTHEMATOSUS [None]
  - EXTRANODAL MARGINAL ZONE B-CELL LYMPHOMA (MALT TYPE) [None]
  - OESOPHAGITIS [None]
